FAERS Safety Report 4957483-8 (Version None)
Quarter: 2006Q1

REPORT INFORMATION
  Report Type: 
  Country: None (occurrence: None)
  Receive Date: 20060328
  Receipt Date: 20060328
  Transmission Date: 20060701
  Serious: No
  Sender: FDA-Public Use
  Company Number: None

PATIENT
  Age: 35 Year
  Sex: Female

DRUGS (1)
  1. LEVOFLOXACIN [Suspect]
     Dosage: 500 MG ONCE IV PIGGYBACK
     Route: 042
     Dates: start: 20060214, end: 20060214

REACTIONS (4)
  - INFUSION RELATED REACTION [None]
  - INFUSION SITE ERYTHEMA [None]
  - INJECTION SITE PRURITUS [None]
  - INJECTION SITE RASH [None]
